FAERS Safety Report 4383627-5 (Version None)
Quarter: 2004Q2

REPORT INFORMATION
  Report Type: 
  Country: None (occurrence: None)
  Receive Date: 20040623
  Receipt Date: 20040521
  Transmission Date: 20050107
  Serious: Yes (Hospitalization)
  Sender: FDA-Public Use
  Company Number: PHNU2004DE01881

PATIENT
  Age: 52 Year
  Sex: Male
  Weight: 83 kg

DRUGS (3)
  1. TRILEPTAL [Suspect]
     Indication: CONVULSION
     Dosage: 600MG/DAY
     Route: 048
     Dates: start: 20040519, end: 20040519
  2. DISTRANEURIN                            /GFR/ [Concomitant]
     Indication: ALCOHOL WITHDRAWAL SYNDROME
     Dosage: MAX. 24 DF/DAY
     Route: 048
     Dates: start: 20040519, end: 20040525
  3. PARACETAMOL (NCH) [Suspect]
     Indication: HEADACHE
     Dosage: UP TO 1500MG/DAY
     Route: 048
     Dates: start: 20040519, end: 20040519

REACTIONS (7)
  - ANAPHYLACTIC SHOCK [None]
  - BLOOD POTASSIUM DECREASED [None]
  - CONJUNCTIVAL HYPERAEMIA [None]
  - DYSPHAGIA [None]
  - DYSPNOEA [None]
  - EYELID OEDEMA [None]
  - SWELLING FACE [None]
